FAERS Safety Report 14180920 (Version 1)
Quarter: 2017Q4

REPORT INFORMATION
  Report Type: Spontaneous
  Country: EC (occurrence: EC)
  Receive Date: 20171108
  Receipt Date: 20171108
  Transmission Date: 20180321
  Serious: No
  Sender: FDA-Public Use
  Company Number: None

PATIENT
  Age: 30 Year
  Sex: Female
  Weight: 47.25 kg

DRUGS (3)
  1. DERIVA C MICRO [Suspect]
     Active Substance: ADAPALENE\CLINDAMYCIN PHOSPHATE
     Indication: ACNE
     Dosage: QUANTITY:1 TUBE;?
     Route: 061
     Dates: start: 20171013, end: 20171107
  2. TRICOVIT [Concomitant]
  3. MINOCIN [Concomitant]
     Active Substance: MINOCYCLINE HYDROCHLORIDE

REACTIONS (2)
  - Swelling face [None]
  - Emotional distress [None]

NARRATIVE: CASE EVENT DATE: 20171015
